FAERS Safety Report 4909485-5 (Version None)
Quarter: 2006Q1

REPORT INFORMATION
  Report Type: 
  Country: None (occurrence: None)
  Receive Date: 20060213
  Receipt Date: 20051020
  Transmission Date: 20060701
  Serious: Yes (Hospitalization, Other)
  Sender: FDA-Public Use
  Company Number: US-MERCK-0510USA08442

PATIENT
  Age: 75 Year
  Sex: Female

DRUGS (1)
  1. VIOXX [Suspect]
     Route: 048
     Dates: start: 20000202, end: 20040801

REACTIONS (22)
  - ANAEMIA [None]
  - ATRIAL FIBRILLATION [None]
  - ATRIOVENTRICULAR BLOCK COMPLETE [None]
  - BRONCHITIS [None]
  - CARDIAC FAILURE CONGESTIVE [None]
  - CATHETER SITE HAEMORRHAGE [None]
  - CEREBROVASCULAR ACCIDENT [None]
  - CEREBROVASCULAR DISORDER [None]
  - DEHYDRATION [None]
  - DELIRIUM [None]
  - DEMENTIA [None]
  - DYSPNOEA [None]
  - ECCHYMOSIS [None]
  - HAEMATOMA [None]
  - HYPERKALAEMIA [None]
  - HYPERTENSIVE HEART DISEASE [None]
  - INJURY [None]
  - METABOLIC ENCEPHALOPATHY [None]
  - NEPHROSCLEROSIS [None]
  - OEDEMA [None]
  - RENAL FAILURE [None]
  - RENAL FAILURE CHRONIC [None]
